FAERS Safety Report 8139039-1 (Version None)
Quarter: 2012Q1

REPORT INFORMATION
  Report Type: 
  Country: None (occurrence: None)
  Receive Date: 20120215
  Receipt Date: 20120207
  Transmission Date: 20120608
  Serious: Yes (Hospitalization)
  Sender: FDA-Public Use
  Company Number: US-B.I. PHARMACEUTICALS,INC./RIDGEFIELD-2011-BP-22991BP

PATIENT
  Age: 40 Year
  Sex: Female

DRUGS (8)
  1. PRADAXA [Suspect]
     Indication: ATRIAL FIBRILLATION
     Dosage: 300 MG
     Dates: start: 20110501, end: 20110716
  2. POTASSIUM CHLORIDE [Concomitant]
     Dosage: 20 MEQ
  3. CELEXA [Concomitant]
     Dosage: 40 MG
  4. ELAVIL [Concomitant]
     Dosage: 10 MG
  5. TRILPEX [Concomitant]
     Dosage: 135 MG
  6. LASIX [Concomitant]
     Dosage: 80 MG
  7. PRILOSEC [Concomitant]
     Dosage: 40 MG
  8. LOPRESSOR [Concomitant]
     Dosage: 150 MG

REACTIONS (2)
  - ARTERIAL THROMBOSIS LIMB [None]
  - DEEP VEIN THROMBOSIS [None]
